FAERS Safety Report 5964625-4 (Version None)
Quarter: 2008Q4

REPORT INFORMATION
  Report Type: 
  Country: None (occurrence: None)
  Receive Date: 20081124
  Receipt Date: 20081124
  Transmission Date: 20090506
  Serious: Yes (Death, Hospitalization)
  Sender: FDA-Public Use
  Company Number: None

PATIENT
  Age: 47 Year
  Sex: Male
  Weight: 78.0187 kg

DRUGS (5)
  1. TRUVADA [Suspect]
     Indication: HIV INFECTION
     Dosage: 200/300 MILLIGRAMS 1 TABLET DAILY ORALLY
     Route: 048
     Dates: start: 20070322, end: 20081024
  2. SUSTIVA [Suspect]
     Indication: HIV INFECTION
     Dosage: 600 MILLIGRAMS 1 TABLET DAILY ORALLY
     Route: 048
     Dates: start: 20070322, end: 20081024
  3. HYDROCHLOROTHIAZIDE [Concomitant]
  4. CLONIDINE [Concomitant]
  5. BACTRIM PROPHYLAXIS [Concomitant]

REACTIONS (61)
  - ABDOMINAL DISTENSION [None]
  - ABDOMINAL PAIN [None]
  - ABDOMINAL TENDERNESS [None]
  - ACIDOSIS [None]
  - ACTIVATED PARTIAL THROMBOPLASTIN TIME PROLONGED [None]
  - ARTERIOSCLEROSIS [None]
  - ASCITES [None]
  - BLOOD CHOLESTEROL INCREASED [None]
  - BLOOD CREATININE INCREASED [None]
  - BLOOD LACTATE DEHYDROGENASE INCREASED [None]
  - BLOOD LACTIC ACID INCREASED [None]
  - BLOOD POTASSIUM INCREASED [None]
  - BLOOD TRIGLYCERIDES INCREASED [None]
  - BRADYCARDIA [None]
  - BREATH SOUNDS ABNORMAL [None]
  - CARDIOMEGALY [None]
  - COLD SWEAT [None]
  - COUGH [None]
  - DILATATION VENTRICULAR [None]
  - DISSEMINATED INTRAVASCULAR COAGULATION [None]
  - DIVERTICULUM INTESTINAL [None]
  - DRUG SCREEN POSITIVE [None]
  - DYSPNOEA [None]
  - DYSPNOEA EXERTIONAL [None]
  - FALL [None]
  - GAIT DISTURBANCE [None]
  - GENERAL PHYSICAL HEALTH DETERIORATION [None]
  - HAEMATEMESIS [None]
  - HAEMORRHAGE [None]
  - HEART RATE INCREASED [None]
  - HEPATIC CONGESTION [None]
  - HEPATIC HAEMORRHAGE [None]
  - HEPATIC NECROSIS [None]
  - HEPATIC STEATOSIS [None]
  - HEPATITIS [None]
  - HYPERTENSION [None]
  - INCOHERENT [None]
  - INTERNATIONAL NORMALISED RATIO INCREASED [None]
  - LACTIC ACIDOSIS [None]
  - LOW DENSITY LIPOPROTEIN INCREASED [None]
  - MEMORY IMPAIRMENT [None]
  - MENTAL STATUS CHANGES [None]
  - MULTI-ORGAN FAILURE [None]
  - NAUSEA [None]
  - PAIN [None]
  - PANCREATIC NEOPLASM [None]
  - PAROXYSMAL ARRHYTHMIA [None]
  - PCO2 DECREASED [None]
  - PERIPHERAL COLDNESS [None]
  - PNEUMOCYSTIS JIROVECI PNEUMONIA [None]
  - PROTHROMBIN TIME PROLONGED [None]
  - RENAL FAILURE ACUTE [None]
  - RESPIRATORY DISTRESS [None]
  - SINUS TACHYCARDIA [None]
  - SOMNOLENCE [None]
  - SPLENOMEGALY [None]
  - TACHYCARDIA [None]
  - TACHYPNOEA [None]
  - UPPER RESPIRATORY TRACT INFECTION [None]
  - VENTRICULAR TACHYCARDIA [None]
  - VOMITING [None]
